FAERS Safety Report 23026476 (Version 1)
Quarter: 2023Q4

REPORT INFORMATION
  Report Type: Spontaneous
  Country: CA (occurrence: CA)
  Receive Date: 20231004
  Receipt Date: 20231004
  Transmission Date: 20240110
  Serious: Yes (Congenital Anomaly)
  Sender: FDA-Public Use
  Company Number: CA-BRISTOL-MYERS SQUIBB COMPANY-2023-085759

PATIENT

DRUGS (78)
  1. ORENCIA [Suspect]
     Active Substance: ABATACEPT
     Indication: Product used for unknown indication
     Route: 064
  2. ORENCIA [Suspect]
     Active Substance: ABATACEPT
     Indication: Product used for unknown indication
     Route: 064
  3. ORENCIA [Suspect]
     Active Substance: ABATACEPT
     Dosage: THERAPY DURATION- 11 MONTHS.
     Route: 064
  4. ORENCIA [Suspect]
     Active Substance: ABATACEPT
     Indication: Product used for unknown indication
     Route: 064
  5. ACETAMINOPHEN [Concomitant]
     Active Substance: ACETAMINOPHEN
     Indication: Product used for unknown indication
     Route: 064
  6. ACTEMRA [Concomitant]
     Active Substance: TOCILIZUMAB
     Indication: Product used for unknown indication
     Route: 064
  7. ACTEMRA [Concomitant]
     Active Substance: TOCILIZUMAB
     Route: 064
  8. ACTEMRA [Concomitant]
     Active Substance: TOCILIZUMAB
     Route: 064
  9. ACTEMRA [Concomitant]
     Active Substance: TOCILIZUMAB
     Route: 064
  10. ACTEMRA [Concomitant]
     Active Substance: TOCILIZUMAB
     Route: 064
  11. ACTEMRA [Concomitant]
     Active Substance: TOCILIZUMAB
     Route: 064
  12. ACTEMRA [Concomitant]
     Active Substance: TOCILIZUMAB
     Route: 064
  13. CIMZIA [Concomitant]
     Active Substance: CERTOLIZUMAB PEGOL
     Indication: Product used for unknown indication
     Route: 064
  14. ENBREL [Concomitant]
     Active Substance: ETANERCEPT
     Indication: Product used for unknown indication
     Route: 064
  15. ENBREL [Concomitant]
     Active Substance: ETANERCEPT
     Route: 064
  16. ENBREL [Concomitant]
     Active Substance: ETANERCEPT
     Route: 064
  17. ENBREL [Concomitant]
     Active Substance: ETANERCEPT
     Route: 064
  18. ENBREL [Concomitant]
     Active Substance: ETANERCEPT
     Route: 064
  19. ENBREL [Concomitant]
     Active Substance: ETANERCEPT
     Route: 064
  20. ENBREL [Concomitant]
     Active Substance: ETANERCEPT
     Route: 064
  21. ENBREL [Concomitant]
     Active Substance: ETANERCEPT
     Route: 064
  22. METHOTREXATE [Concomitant]
     Active Substance: METHOTREXATE
     Indication: Product used for unknown indication
     Route: 064
  23. METHOTREXATE [Concomitant]
     Active Substance: METHOTREXATE
     Route: 064
  24. METHOTREXATE [Concomitant]
     Active Substance: METHOTREXATE
     Route: 064
  25. METHOTREXATE [Concomitant]
     Active Substance: METHOTREXATE
     Route: 064
  26. METHOTREXATE [Concomitant]
     Active Substance: METHOTREXATE
     Route: 064
  27. METHOTREXATE [Concomitant]
     Active Substance: METHOTREXATE
     Route: 064
  28. METHOTREXATE [Concomitant]
     Active Substance: METHOTREXATE
     Dosage: 4015.0 DAYS
     Route: 064
  29. METHOTREXATE [Concomitant]
     Active Substance: METHOTREXATE
     Route: 064
  30. METHOTREXATE [Concomitant]
     Active Substance: METHOTREXATE
     Route: 064
  31. METHOTREXATE [Concomitant]
     Active Substance: METHOTREXATE
     Route: 064
  32. METHOTREXATE [Concomitant]
     Active Substance: METHOTREXATE
     Route: 064
  33. METHOTREXATE [Concomitant]
     Active Substance: METHOTREXATE
     Route: 064
  34. METHOTREXATE [Concomitant]
     Active Substance: METHOTREXATE
     Route: 064
  35. METHOTREXATE [Concomitant]
     Active Substance: METHOTREXATE
     Route: 064
  36. REMICADE [Concomitant]
     Active Substance: INFLIXIMAB
     Indication: Product used for unknown indication
     Route: 064
  37. REMICADE [Concomitant]
     Active Substance: INFLIXIMAB
     Route: 064
  38. REMICADE [Concomitant]
     Active Substance: INFLIXIMAB
     Route: 064
  39. REMICADE [Concomitant]
     Active Substance: INFLIXIMAB
     Route: 064
  40. REMICADE [Concomitant]
     Active Substance: INFLIXIMAB
     Route: 064
  41. RITUXIMAB [Concomitant]
     Active Substance: RITUXIMAB
     Indication: Product used for unknown indication
     Route: 064
  42. SULFASALAZINE [Concomitant]
     Active Substance: SULFASALAZINE
     Indication: Product used for unknown indication
     Route: 064
  43. SULFASALAZINE [Concomitant]
     Active Substance: SULFASALAZINE
     Dosage: 365.0 DAYS
     Route: 064
  44. SULFASALAZINE [Concomitant]
     Active Substance: SULFASALAZINE
     Dosage: THERAPY DURATION: 365
     Route: 064
  45. SULFASALAZINE [Concomitant]
     Active Substance: SULFASALAZINE
     Route: 064
  46. SULFASALAZINE [Concomitant]
     Active Substance: SULFASALAZINE
     Route: 064
  47. SULFASALAZINE [Concomitant]
     Active Substance: SULFASALAZINE
     Route: 064
  48. SULFASALAZINE [Concomitant]
     Active Substance: SULFASALAZINE
     Route: 064
  49. SULFASALAZINE [Concomitant]
     Active Substance: SULFASALAZINE
     Route: 064
  50. SULFASALAZINE [Concomitant]
     Active Substance: SULFASALAZINE
     Route: 064
  51. SULFASALAZINE [Concomitant]
     Active Substance: SULFASALAZINE
     Route: 064
  52. SULFASALAZINE [Concomitant]
     Active Substance: SULFASALAZINE
     Route: 064
  53. SULFASALAZINE [Concomitant]
     Active Substance: SULFASALAZINE
     Route: 064
  54. SULFASALAZINE [Concomitant]
     Active Substance: SULFASALAZINE
     Route: 064
  55. SULFASALAZINE [Concomitant]
     Active Substance: SULFASALAZINE
     Dosage: THERAPY DURATION: 365
     Route: 064
  56. XELJANZ [Concomitant]
     Active Substance: TOFACITINIB CITRATE
     Indication: Product used for unknown indication
     Route: 064
  57. XELJANZ [Concomitant]
     Active Substance: TOFACITINIB CITRATE
     Route: 064
  58. XELJANZ [Concomitant]
     Active Substance: TOFACITINIB CITRATE
     Route: 064
  59. XELJANZ [Concomitant]
     Active Substance: TOFACITINIB CITRATE
     Route: 064
  60. XELJANZ [Concomitant]
     Active Substance: TOFACITINIB CITRATE
     Route: 064
  61. XELJANZ [Concomitant]
     Active Substance: TOFACITINIB CITRATE
     Route: 064
  62. XELJANZ [Concomitant]
     Active Substance: TOFACITINIB CITRATE
     Route: 064
  63. XELJANZ [Concomitant]
     Active Substance: TOFACITINIB CITRATE
     Route: 064
  64. DOXYCYCLINE HYCLATE [Concomitant]
     Active Substance: DOXYCYCLINE HYCLATE
     Indication: Product used for unknown indication
     Route: 064
  65. HYDROCORTISONE [Concomitant]
     Active Substance: HYDROCORTISONE
     Indication: Product used for unknown indication
     Route: 064
  66. HYDROCORTISONE [Concomitant]
     Active Substance: HYDROCORTISONE
     Route: 064
  67. HYDROCORTISONE [Concomitant]
     Active Substance: HYDROCORTISONE
     Route: 064
  68. HYDROCORTISONE [Concomitant]
     Active Substance: HYDROCORTISONE
     Route: 064
  69. HYDROCORTISONE [Concomitant]
     Active Substance: HYDROCORTISONE
     Route: 064
  70. PANTOPRAZOLE [Concomitant]
     Active Substance: PANTOPRAZOLE
     Indication: Product used for unknown indication
     Route: 064
  71. PANTOPRAZOLE [Concomitant]
     Active Substance: PANTOPRAZOLE
     Route: 064
  72. SOLU-MEDROL [Concomitant]
     Active Substance: METHYLPREDNISOLONE SODIUM SUCCINATE
     Indication: Product used for unknown indication
     Route: 064
  73. ADALIMUMAB [Concomitant]
     Active Substance: ADALIMUMAB
     Indication: Product used for unknown indication
     Dosage: SOLUTION SUBCUTANEOUS
     Route: 064
  74. LYRICA [Concomitant]
     Active Substance: PREGABALIN
     Indication: Product used for unknown indication
     Route: 064
  75. CELEBREX [Concomitant]
     Active Substance: CELECOXIB
     Indication: Product used for unknown indication
     Route: 064
  76. CELEBREX [Concomitant]
     Active Substance: CELECOXIB
     Route: 064
  77. CELEBREX [Concomitant]
     Active Substance: CELECOXIB
     Route: 064
  78. INFLIXIMAB [Concomitant]
     Active Substance: INFLIXIMAB
     Indication: Product used for unknown indication
     Route: 064

REACTIONS (2)
  - Congenital anomaly [Unknown]
  - Foetal exposure during pregnancy [Unknown]
